FAERS Safety Report 5227860-9 (Version None)
Quarter: 2007Q1

REPORT INFORMATION
  Report Type: 
  Country: None (occurrence: None)
  Receive Date: 20070202
  Receipt Date: 20070126
  Transmission Date: 20070707
  Serious: Yes (Hospitalization, Other)
  Sender: FDA-Public Use
  Company Number: CA-ABBOTT-06P-028-0346243-00

PATIENT
  Age: 64 Year
  Sex: Male
  Weight: 91 kg

DRUGS (12)
  1. LIPIDIL [Suspect]
     Indication: BLOOD CHOLESTEROL
     Route: 048
  2. INFLIXIMAB [Suspect]
     Indication: POLYARTHRITIS
     Route: 042
     Dates: start: 20051130, end: 20060112
  3. VITAMIN B COMPLEX CAP [Concomitant]
     Indication: DRUG USE FOR UNKNOWN INDICATION
  4. HYDROMORPHONE HYDROCHLORIDE [Concomitant]
     Indication: DRUG USE FOR UNKNOWN INDICATION
  5. METHOTREXATE [Concomitant]
     Indication: DRUG USE FOR UNKNOWN INDICATION
     Dates: start: 20060120
  6. METOPROLOL TARTRATE [Concomitant]
     Indication: DRUG USE FOR UNKNOWN INDICATION
  7. FUROSEMIDE [Concomitant]
     Indication: DRUG USE FOR UNKNOWN INDICATION
  8. POTASSIUM CHLORIDE [Concomitant]
     Indication: DRUG USE FOR UNKNOWN INDICATION
  9. ALLOPURINOL SODIUM [Concomitant]
     Indication: DRUG USE FOR UNKNOWN INDICATION
  10. ESOMEPRAZOLE MAGNESIUM [Concomitant]
     Indication: DRUG USE FOR UNKNOWN INDICATION
  11. RANITIDINE [Concomitant]
     Indication: DRUG USE FOR UNKNOWN INDICATION
  12. FOLINIC ACID [Concomitant]
     Indication: DRUG USE FOR UNKNOWN INDICATION

REACTIONS (4)
  - JOINT RANGE OF MOTION DECREASED [None]
  - MUSCULOSKELETAL PAIN [None]
  - NECK PAIN [None]
  - RHEUMATOID ARTHRITIS [None]
